FAERS Safety Report 22643294 (Version 2)
Quarter: 2023Q2

REPORT INFORMATION
  Report Type: Spontaneous
  Country: US (occurrence: US)
  Receive Date: 20230627
  Receipt Date: 20230628
  Transmission Date: 20230721
  Serious: No
  Sender: FDA-Public Use
  Company Number: US-BRISTOL-MYERS SQUIBB COMPANY-2023-089559

PATIENT
  Age: 77 Year
  Sex: Male

DRUGS (42)
  1. REVLIMID [Suspect]
     Active Substance: LENALIDOMIDE
     Indication: Plasma cell myeloma
     Dosage: 17/28 DAYS ON, START DATE: BEFORE 2020
     Route: 048
  2. REVLIMID [Suspect]
     Active Substance: LENALIDOMIDE
     Dosage: TAKE 1 CAPSULE BY DAILY DAYS, THEN EVERY OTHER DAY X 7 DAYS, THEN DAILY X 7 DAYS, THEN 7 DAYS OFF. H
     Route: 048
  3. REVLIMID [Suspect]
     Active Substance: LENALIDOMIDE
     Dosage: TAKE 1 CAPSULE BY DAILY DAYS, THEN EVERY OTHER DAY X 7 DAYS, THEN DAILY X 7 DAYS, THEN 7 DAYS OFF. H
     Route: 048
  4. REVLIMID [Suspect]
     Active Substance: LENALIDOMIDE
     Dosage: TAKE 1 CAPSULE BY MOUTH EVERY DAY
     Route: 048
  5. REVLIMID [Suspect]
     Active Substance: LENALIDOMIDE
     Dosage: TAKE 1 CAPSULE MOUTH EVERY DAY FROM MON12/26/22 THROUGH FRIDAY 12/30/22.
     Route: 048
     Dates: start: 20221226
  6. REVLIMID [Suspect]
     Active Substance: LENALIDOMIDE
     Dosage: TAKE 1 CAPSULE EVERYDAY X 7 DAYS. THEN EVERY OTHER DAY X 7 DAYS, THEN DAILY FOR 7 DAYS, THEN 1 WEEK
     Route: 048
  7. REVLIMID [Suspect]
     Active Substance: LENALIDOMIDE
     Dosage: TAKE 1 CAPSULE BY MOUTH EVERY DAY
     Route: 048
  8. REVLIMID [Suspect]
     Active Substance: LENALIDOMIDE
     Dosage: TAKE ONE CAPSULE BY MOUTH EVERY DAY FOR 7 DAYS, EVERY OTHER DAY FOR 7 DAYS, EVERY DAY FOR 7 DAYS, 1
     Route: 048
  9. REVLIMID [Suspect]
     Active Substance: LENALIDOMIDE
     Dosage: TAKE 1 CAPSULE MOUTH DAILY FOR 14 DAYS FOLLOWED BY 7 DAYS OFF
     Route: 048
  10. REVLIMID [Suspect]
     Active Substance: LENALIDOMIDE
     Dosage: TAKE ONE CAPSUL BY MOUTH EVERY DAY
     Route: 048
  11. REVLIMID [Suspect]
     Active Substance: LENALIDOMIDE
     Dosage: TAKE 1 CAPSULE MOUTH DAILY ONE CAPSULE BY MOUTH EVERY DAY( MON- FRIDAY) HOLD ON WEEKENDS WHEN ZARXIO
     Route: 048
  12. REVLIMID [Suspect]
     Active Substance: LENALIDOMIDE
     Dosage: TAKE ONE CAPSUL BY MOUTH EVERY DAY
     Route: 048
  13. REVLIMID [Suspect]
     Active Substance: LENALIDOMIDE
     Dosage: TAKE 1 CAPSULE BY MOUTH DAILY FOR 7 DAYS, THEN EVERY OTHER DAY FOR 7 DAYS, THEN DAILY FOR 7 DAYS, ON
     Route: 048
  14. REVLIMID [Suspect]
     Active Substance: LENALIDOMIDE
     Dosage: TAKE ONE CAPSUL BY MOUTH EVERY DAY
     Route: 048
  15. REVLIMID [Suspect]
     Active Substance: LENALIDOMIDE
     Dosage: TAKE ONE CAPSULE BY MOUTH ON DAYS 1 TO 14 FOLLOWED BY 7 DAY BREAK EVERY 21 DAYS
     Route: 048
  16. FLUAD QUAD [Concomitant]
     Indication: Product used for unknown indication
     Dosage: ADMINISTRATION 0.5 ML IN THE MUSCLE AS DIRECTED TODAY
     Route: 030
     Dates: end: 20221025
  17. PFIZER BIONTECH COVID-19 VACCINE, BIVALENT (ORIGINAL AND OMICRON BA.4/ [Concomitant]
     Indication: COVID-19 immunisation
     Dosage: ADMINISTRATION 0.3 ML IN THE MUSCLE AS DIRECTED TODAY.
     Route: 030
  18. SHINGRIX [Concomitant]
     Active Substance: RECOMBINANT VARICELLA ZOSTER VIRUS (VZV) GLYCOPROTEIN E
     Indication: Product used for unknown indication
     Dosage: SNGDSE VL 10 PK ADMINISTERED 0.5 ML IN THE MUSCLE AS DIRECTED TODAY
     Route: 030
  19. ZARXIO [Concomitant]
     Active Substance: FILGRASTIM-SNDZ
     Indication: Product used for unknown indication
     Dosage: 480 MCG/0.8ML PF SYR 0.8ML ( INJECT THE CONTENTS OF 1 SYRINGE UNDER THE SKIN ON SATURDAYS CHEMOTHERA
  20. ZARXIO [Concomitant]
     Active Substance: FILGRASTIM-SNDZ
     Dosage: 480 MCG/0.8ML PF SYR 0.8ML (INJECT 480 MCG SUBCUTANEOUS ON SATURDAY EVERY 2 WEEKS AFTER CHEMOTHERAPY
  21. ZARXIO [Concomitant]
     Active Substance: FILGRASTIM-SNDZ
     Dosage: 480 MCG/0.8ML PF SYR 0.8ML (INJECT 480 MCG SUBCUTANEOUS ON SATURDAY EVERY 2 WEEKS AFTER CHEMOTHERAPY
  22. ZARXIO [Concomitant]
     Active Substance: FILGRASTIM-SNDZ
     Dosage: 300 MCG/0.5ML PF SYR 0.5ML
  23. ACYCLOVIR [Concomitant]
     Active Substance: ACYCLOVIR
     Indication: Product used for unknown indication
  24. ATORVASTATIN [Concomitant]
     Active Substance: ATORVASTATIN
     Indication: Product used for unknown indication
  25. BUMETANIDE [Concomitant]
     Active Substance: BUMETANIDE
     Indication: Product used for unknown indication
  26. VITAMIN D3 [Concomitant]
     Active Substance: CHOLECALCIFEROL
     Indication: Product used for unknown indication
     Dosage: LIQUID
  27. CALCIUM [Concomitant]
     Active Substance: CALCIUM
     Indication: Product used for unknown indication
     Dosage: LIQUID
  28. CETIRIZINE [Concomitant]
     Active Substance: CETIRIZINE HYDROCHLORIDE
     Indication: Product used for unknown indication
  29. DARZALEX [Concomitant]
     Active Substance: DARATUMUMAB
     Indication: Product used for unknown indication
     Dosage: 100 MG/5ML INJ 1 VIAL
  30. DEXAMETHASONE [Concomitant]
     Active Substance: DEXAMETHASONE
     Indication: Product used for unknown indication
  31. DIPHENHYDRAMINE [Concomitant]
     Active Substance: DIPHENHYDRAMINE
     Indication: Product used for unknown indication
  32. DOXAZOSIN [Concomitant]
     Active Substance: DOXAZOSIN MESYLATE
     Indication: Product used for unknown indication
  33. ELIQUIS [Concomitant]
     Active Substance: APIXABAN
     Indication: Product used for unknown indication
  34. LISINOPRIL [Concomitant]
     Active Substance: LISINOPRIL
     Indication: Product used for unknown indication
  35. METOPROLOL SUCCINATE [Concomitant]
     Active Substance: METOPROLOL SUCCINATE
     Indication: Product used for unknown indication
  36. VITAMINS NOS [Concomitant]
     Active Substance: VITAMINS
     Indication: Product used for unknown indication
  37. PAROXETINE [Concomitant]
     Active Substance: PAROXETINE
     Indication: Product used for unknown indication
  38. TYLENOL [Concomitant]
     Active Substance: ACETAMINOPHEN
     Indication: Product used for unknown indication
     Dosage: E/S
  39. ACETAMINOPHEN [Concomitant]
     Active Substance: ACETAMINOPHEN
     Indication: Product used for unknown indication
  40. VELCADE [Concomitant]
     Active Substance: BORTEZOMIB
     Indication: Product used for unknown indication
     Dosage: 1 VIAL
  41. VITAMIN D3 [Concomitant]
     Active Substance: CHOLECALCIFEROL
     Indication: Product used for unknown indication
     Dosage: 1000 UNITS
  42. XGEVA [Concomitant]
     Active Substance: DENOSUMAB
     Indication: Product used for unknown indication
     Dosage: 120MG/1.7ML INJECTION,1.7ML

REACTIONS (3)
  - Gout [Unknown]
  - Off label use [Unknown]
  - Hyperuricaemia [Unknown]

NARRATIVE: CASE EVENT DATE: 20230601
